FAERS Safety Report 4759508-1 (Version None)
Quarter: 2005Q3

REPORT INFORMATION
  Report Type: 
  Country: None (occurrence: None)
  Receive Date: 20050826
  Receipt Date: 20050718
  Transmission Date: 20060218
  Serious: No
  Sender: FDA-Public Use
  Company Number: 215648

PATIENT
  Age: 64 Year
  Sex: Female

DRUGS (5)
  1. RAPTIVA [Suspect]
     Indication: PSORIASIS
     Dosage: 0.8ML 1/WEEK SUBCUTANEOUS
     Route: 058
     Dates: start: 20050609
  2. ZITHROMAX [Concomitant]
  3. LIGHT THERAPY(PHOTOTHERAPY) [Concomitant]
  4. TAR [Concomitant]
  5. SALICYCLIC ACID [Concomitant]

REACTIONS (1)
  - PSORIASIS [None]
